FAERS Safety Report 8759809 (Version 1)
Quarter: 2012Q4

REPORT INFORMATION
  Report Type: 
  Country: CN (occurrence: CN)
  Receive Date: 20120829
  Receipt Date: 20120829
  Transmission Date: 20130627
  Serious: Yes (Other)
  Sender: FDA-Public Use
  Company Number: CN-ASTRAZENECA-2012SE64706

PATIENT
  Sex: Female
  Weight: 60 kg

DRUGS (3)
  1. NEXIUM [Suspect]
     Indication: GASTRIC HAEMORRHAGE
     Route: 042
     Dates: start: 20110824, end: 20110825
  2. OMEPRAZOLE [Concomitant]
     Indication: GASTRIC HAEMORRHAGE
     Route: 042
     Dates: start: 20110825, end: 20110830
  3. OCTREOTIDE [Concomitant]
     Route: 042
     Dates: start: 20110823

REACTIONS (2)
  - Dermatitis bullous [Recovering/Resolving]
  - Pruritus [Unknown]
